FAERS Safety Report 8977625 (Version 2)
Quarter: 2013Q2

REPORT INFORMATION
  Report Type: Spontaneous
  Country: US (occurrence: US)
  Receive Date: 20121220
  Receipt Date: 20130401
  Transmission Date: 20140414
  Serious: Yes (Death, Life-Threatening, Disabling)
  Sender: FDA-Public Use
  Company Number: US-GLAXOSMITHKLINE-A1006096A

PATIENT
  Age: 67 Year
  Sex: Male

DRUGS (5)
  1. PROMACTA [Suspect]
     Indication: AUTOIMMUNE THROMBOCYTOPENIA
     Dosage: 50MG PER DAY
     Route: 048
     Dates: start: 201208, end: 201212
  2. SPIRIVA [Concomitant]
     Route: 055
  3. XOPENEX [Concomitant]
     Route: 055
  4. DILTIAZEM [Concomitant]
     Dosage: 180CAP PER DAY
     Route: 048
  5. ENTERIC ASPIRIN [Concomitant]
     Route: 048

REACTIONS (1)
  - Acute myeloid leukaemia [Fatal]
